FAERS Safety Report 18506349 (Version 4)
Quarter: 2022Q2

REPORT INFORMATION
  Report Type: Spontaneous
  Country: US (occurrence: US)
  Receive Date: 20201116
  Receipt Date: 20220622
  Transmission Date: 20220721
  Serious: Yes (Other)
  Sender: FDA-Public Use
  Company Number: US-PFIZER INC-2020445710

PATIENT
  Age: 64 Year
  Sex: Female

DRUGS (2)
  1. XELJANZ XR [Suspect]
     Active Substance: TOFACITINIB CITRATE
     Indication: Rheumatoid arthritis
     Dosage: 11 MG, 1X/DAY
     Route: 048
     Dates: start: 2019
  2. XELJANZ XR [Suspect]
     Active Substance: TOFACITINIB CITRATE
     Indication: Psoriatic arthropathy

REACTIONS (23)
  - Carotid artery occlusion [Unknown]
  - Condition aggravated [Unknown]
  - Acute kidney injury [Unknown]
  - Hysterectomy [Unknown]
  - Condition aggravated [Unknown]
  - Intentional overdose [Unknown]
  - Product dose omission issue [Unknown]
  - Intentional dose omission [Unknown]
  - Renal disorder [Unknown]
  - Flatulence [Unknown]
  - Abdominal distension [Unknown]
  - Viral infection [Unknown]
  - COVID-19 [Unknown]
  - Decreased immune responsiveness [Recovering/Resolving]
  - Pain in extremity [Unknown]
  - Arthralgia [Unknown]
  - Back pain [Unknown]
  - Joint effusion [Unknown]
  - Nodule [Unknown]
  - Sensitivity to weather change [Unknown]
  - Blood pressure abnormal [Recovering/Resolving]
  - Urinary tract infection [Unknown]
  - Hepatic steatosis [Unknown]

NARRATIVE: CASE EVENT DATE: 20201117
